FAERS Safety Report 5880302-2 (Version None)
Quarter: 2008Q3

REPORT INFORMATION
  Report Type: 
  Country: None (occurrence: None)
  Receive Date: 20080912
  Receipt Date: 20080904
  Transmission Date: 20090109
  Serious: Yes (Other)
  Sender: FDA-Public Use
  Company Number: US-PFIZER INC-2008074667

PATIENT
  Sex: Male
  Weight: 95.454 kg

DRUGS (1)
  1. LIPITOR [Suspect]
     Indication: BLOOD CHOLESTEROL INCREASED

REACTIONS (5)
  - ATRIOVENTRICULAR BLOCK [None]
  - CHEST DISCOMFORT [None]
  - FATIGUE [None]
  - OBESITY [None]
  - POSTOPERATIVE THORACIC PROCEDURE COMPLICATION [None]
